FAERS Safety Report 5558245-3 (Version None)
Quarter: 2007Q4

REPORT INFORMATION
  Report Type: 
  Country: None (occurrence: None)
  Receive Date: 20071214
  Receipt Date: 20071203
  Transmission Date: 20080405
  Serious: Yes (Hospitalization, Other)
  Sender: FDA-Public Use
  Company Number: FR-PFIZER INC-2007101634

PATIENT
  Age: 57 Year
  Sex: Male

DRUGS (1)
  1. SULFASALAZINE [Suspect]

REACTIONS (11)
  - ARTHRALGIA [None]
  - COLITIS ULCERATIVE [None]
  - COUGH [None]
  - DEEP VEIN THROMBOSIS [None]
  - FATIGUE [None]
  - MALAISE [None]
  - NAUSEA [None]
  - NIGHT SWEATS [None]
  - PLEUROPERICARDITIS [None]
  - PYREXIA [None]
  - WEIGHT DECREASED [None]
